FAERS Safety Report 21767666 (Version 1)
Quarter: 2022Q4

REPORT INFORMATION
  Report Type: Spontaneous
  Country: US (occurrence: None)
  Receive Date: 20221222
  Receipt Date: 20221222
  Transmission Date: 20230113
  Serious: Yes (Hospitalization)
  Sender: FDA-Public Use
  Company Number: None

PATIENT
  Age: 33 Year
  Sex: Male
  Weight: 90.4 kg

DRUGS (2)
  1. DAPTOMYCIN [Suspect]
     Active Substance: DAPTOMYCIN
     Indication: Abdominal infection
     Dosage: FREQUENCY : DAILY;?
     Route: 042
     Dates: start: 20220629, end: 20220707
  2. ERTAPENEM [Concomitant]
     Active Substance: ERTAPENEM
     Dates: start: 20220629, end: 20220707

REACTIONS (6)
  - Pain in extremity [None]
  - Arthralgia [None]
  - Pain in extremity [None]
  - Blood creatine phosphokinase increased [None]
  - Aspartate aminotransferase increased [None]
  - Blood creatinine decreased [None]

NARRATIVE: CASE EVENT DATE: 20220707
